FAERS Safety Report 5285438-5 (Version None)
Quarter: 2007Q1

REPORT INFORMATION
  Report Type: 
  Country: None (occurrence: None)
  Receive Date: 20070328
  Receipt Date: 20070316
  Transmission Date: 20070707
  Serious: Yes (Hospitalization, Other)
  Sender: FDA-Public Use
  Company Number: 2007312433

PATIENT
  Age: 33 Year
  Sex: Female
  Weight: 68 kg

DRUGS (3)
  1. BENADRYL [Suspect]
     Indication: NERVE BLOCK
     Dosage: UNKNOWN, ONCE (1 IN 1 D), UNKNOWN
     Dates: start: 20070311, end: 20070311
  2. TETANUS VACCINE (TETANUS TOXOID) [Suspect]
     Dosage: ONCE, INTRAMUSCULAR
     Route: 030
     Dates: start: 20070311, end: 20070311
  3. WELLBUTRIN [Concomitant]

REACTIONS (3)
  - HYPOAESTHESIA [None]
  - OEDEMA PERIPHERAL [None]
  - POST PROCEDURAL COMPLICATION [None]
